FAERS Safety Report 16356472 (Version 1)
Quarter: 2019Q2

REPORT INFORMATION
  Report Type: Report from Study
  Country: None (occurrence: IL)
  Receive Date: 20190527
  Receipt Date: 20190527
  Transmission Date: 20190711
  Serious: Yes (Death)
  Sender: FDA-Public Use
  Company Number: IL-ABBVIE-19S-082-2796582-00

PATIENT
  Age: 68 Year
  Sex: Female

DRUGS (1)
  1. DUODOPA [Suspect]
     Active Substance: CARBIDOPA\LEVODOPA
     Indication: PARKINSON^S DISEASE
     Dosage: CURRENT MD- 12.5 ML, CURRENT FIXED RATE-3.3 ML/ HOUR, CURRENT ED 1.5 ML
     Route: 050
     Dates: start: 20171230, end: 20190523

REACTIONS (1)
  - Death [Fatal]

NARRATIVE: CASE EVENT DATE: 20190523
